FAERS Safety Report 5503852-7 (Version None)
Quarter: 2007Q4

REPORT INFORMATION
  Report Type: 
  Country: None (occurrence: None)
  Receive Date: 20071030
  Receipt Date: 20071022
  Transmission Date: 20080405
  Serious: Yes (Other)
  Sender: FDA-Public Use
  Company Number: CHPA2007US11139

PATIENT
  Sex: Female

DRUGS (1)
  1. PERDIEM UNKNOWN (NCH)(UNKNOWN) GRANULATE [Suspect]
     Dosage: YEARS AGO, TOOK FOR SEVERAL YEARS

REACTIONS (3)
  - COLON CANCER [None]
  - GASTROINTESTINAL DISORDER [None]
  - INTENTIONAL DRUG MISUSE [None]
